FAERS Safety Report 7350201-8 (Version None)
Quarter: 2011Q1

REPORT INFORMATION
  Report Type: 
  Country: None (occurrence: None)
  Receive Date: 20110314
  Receipt Date: 20110308
  Transmission Date: 20110831
  Serious: Yes (Hospitalization)
  Sender: FDA-Public Use
  Company Number: D0069887A

PATIENT
  Sex: Male

DRUGS (1)
  1. MALARONE [Suspect]
     Route: 048

REACTIONS (8)
  - ARTHRALGIA [None]
  - ABDOMINAL PAIN [None]
  - DYSPNOEA [None]
  - ASTHENIA [None]
  - HEADACHE [None]
  - LIVER DISORDER [None]
  - MYALGIA [None]
  - BILE DUCT STENOSIS [None]
